FAERS Safety Report 12295810 (Version 1)
Quarter: 2016Q2

REPORT INFORMATION
  Report Type: Spontaneous
  Country: US (occurrence: US)
  Receive Date: 20160422
  Receipt Date: 20160422
  Transmission Date: 20160815
  Serious: No
  Sender: FDA-Public Use
  Company Number: US-PURDUE-USA-2016-0128959

PATIENT
  Sex: Male

DRUGS (1)
  1. OXYCONTIN [Suspect]
     Active Substance: OXYCODONE HYDROCHLORIDE
     Indication: ANALGESIC THERAPY
     Dosage: 80 MG, 5/DAY
     Route: 048
     Dates: start: 2001, end: 2010

REACTIONS (3)
  - Diarrhoea [Unknown]
  - Vomiting [Unknown]
  - Abdominal pain upper [Unknown]
